FAERS Safety Report 18389846 (Version 6)
Quarter: 2021Q2

REPORT INFORMATION
  Report Type: Report from Study
  Country: GB (occurrence: GB)
  Receive Date: 20201015
  Receipt Date: 20210524
  Transmission Date: 20210717
  Serious: Yes (Hospitalization, Other)
  Sender: FDA-Public Use
  Company Number: NVSC2020GB137909

PATIENT
  Age: 72 Year
  Sex: Female

DRUGS (3)
  1. SANDOSTATIN LAR DEPOT [Suspect]
     Active Substance: OCTREOTIDE ACETATE
     Indication: NEUROENDOCRINE TUMOUR
     Dosage: 30 MG, QMO
     Route: 030
     Dates: start: 201910
  2. SANDOSTATIN LAR DEPOT [Suspect]
     Active Substance: OCTREOTIDE ACETATE
     Dosage: 30 MG, QMO
     Route: 030
     Dates: start: 20191106
  3. SANDOSTATIN LAR DEPOT [Suspect]
     Active Substance: OCTREOTIDE ACETATE
     Dosage: 30 MG, QMO
     Route: 030
     Dates: start: 20191106

REACTIONS (9)
  - Arthralgia [Recovering/Resolving]
  - Fall [Unknown]
  - Sepsis [Recovering/Resolving]
  - Infection [Unknown]
  - Neoplasm progression [Unknown]
  - Flushing [Recovering/Resolving]
  - Neoplasm [Recovering/Resolving]
  - Clostridium difficile infection [Recovering/Resolving]
  - Carcinoid crisis [Recovering/Resolving]

NARRATIVE: CASE EVENT DATE: 20210127
